FAERS Safety Report 11801340 (Version 1)
Quarter: 2015Q4

REPORT INFORMATION
  Report Type: Spontaneous
  Country: DE (occurrence: DE)
  Receive Date: 20151204
  Receipt Date: 20151204
  Transmission Date: 20160305
  Serious: Yes (Other)
  Sender: FDA-Public Use
  Company Number: DE-AUROBINDO-AUR-APL-2015-10937

PATIENT
  Age: 35 Year
  Sex: Female

DRUGS (5)
  1. CIPRALEX [Concomitant]
     Active Substance: ESCITALOPRAM OXALATE
     Indication: ANXIETY DISORDER
     Dosage: 30 MG/D, REDUCTION TO 20 MG/D
     Route: 048
  2. DIAZEPAM. [Concomitant]
     Active Substance: DIAZEPAM
     Indication: ANXIETY DISORDER
     Dosage: 2.5 MG, DAILY
     Route: 048
  3. VENLAFAXINE [Suspect]
     Active Substance: VENLAFAXINE HYDROCHLORIDE
     Indication: ANXIETY DISORDER
     Dosage: 1125.5 MG, UNK
     Route: 048
     Dates: start: 20131118, end: 20140707
  4. PASPERTIN                          /00041902/ [Concomitant]
     Active Substance: METOCLOPRAMIDE HYDROCHLORIDE
     Indication: NAUSEA
     Route: 048
  5. TARDYFERON [Concomitant]
     Active Substance: FERROUS SULFATE\FOLIC ACID
     Indication: RESTLESS LEGS SYNDROME
     Route: 048

REACTIONS (4)
  - Stillbirth [Recovered/Resolved]
  - Foetal death [Recovered/Resolved]
  - Amniotic cavity infection [Recovered/Resolved]
  - Exposure during pregnancy [Recovered/Resolved]
